FAERS Safety Report 6618621-4 (Version None)
Quarter: 2010Q1

REPORT INFORMATION
  Report Type: 
  Country: None (occurrence: None)
  Receive Date: 20100308
  Receipt Date: 20100223
  Transmission Date: 20100710
  Serious: Yes (Life-Threatening, Hospitalization)
  Sender: FDA-Public Use
  Company Number: JP-AMGEN-US383555

PATIENT
  Sex: Male
  Weight: 58 kg

DRUGS (15)
  1. ENBREL [Suspect]
     Indication: RHEUMATOID ARTHRITIS
     Route: 058
     Dates: start: 20081010, end: 20091104
  2. ENBREL [Suspect]
     Dosage: UNSPECIFIED
  3. METHOTREXATE [Suspect]
     Indication: RHEUMATOID ARTHRITIS
     Route: 048
     Dates: start: 20070720
  4. METHOTREXATE [Suspect]
     Route: 048
     Dates: start: 20090303
  5. METHOTREXATE [Suspect]
     Route: 048
     Dates: start: 20090814, end: 20091105
  6. RHEUMATREX [Suspect]
     Indication: RHEUMATOID ARTHRITIS
     Route: 048
     Dates: start: 20070101, end: 20091105
  7. RHEUMATREX [Suspect]
     Route: 048
     Dates: start: 20100122
  8. NEO UMOR [Concomitant]
     Indication: PROPHYLAXIS
     Route: 048
     Dates: end: 20091111
  9. TAGAMET [Concomitant]
     Indication: PROPHYLAXIS
     Route: 048
     Dates: end: 20091111
  10. LIVALO [Concomitant]
     Indication: HYPERLIPIDAEMIA
     Route: 048
     Dates: end: 20091111
  11. BENET [Concomitant]
     Indication: OSTEOPOROSIS
     Route: 048
  12. AMLODIPINE BESYLATE [Concomitant]
     Indication: POSTINFARCTION ANGINA
     Route: 048
     Dates: end: 20091111
  13. WARFARIN POTASSIUM [Concomitant]
     Indication: POSTINFARCTION ANGINA
     Route: 048
     Dates: end: 20091111
  14. WARFARIN POTASSIUM [Concomitant]
     Route: 048
     Dates: start: 20100115
  15. ISCOTIN [Concomitant]
     Indication: ANTIBIOTIC PROPHYLAXIS
     Route: 048
     Dates: end: 20091111

REACTIONS (1)
  - PNEUMOCYSTIS JIROVECI PNEUMONIA [None]
